FAERS Safety Report 24260401 (Version 7)
Quarter: 2025Q3

REPORT INFORMATION
  Report Type: Report from Study
  Country: US (occurrence: US)
  Receive Date: 20240828
  Receipt Date: 20250916
  Transmission Date: 20251020
  Serious: Yes (Hospitalization, Other)
  Sender: SUNOVION
  Company Number: US-SUMITOMO PHARMA SWITZERLAND GMBH-2024SPA000583

PATIENT
  Age: 72 Year
  Sex: Male

DRUGS (37)
  1. ORGOVYX [Suspect]
     Active Substance: RELUGOLIX
     Indication: Prostate cancer
     Dosage: 360 MG, SINGLE
     Route: 048
     Dates: start: 202407, end: 202407
  2. ORGOVYX [Suspect]
     Active Substance: RELUGOLIX
     Dosage: 120 MG, QD
     Route: 048
     Dates: start: 202407
  3. INSULIN NOS [Concomitant]
     Active Substance: INSULIN NOS
  4. ALLOPURINOL [Concomitant]
     Active Substance: ALLOPURINOL
  5. AMLODIPINE BESYLATE [Concomitant]
     Active Substance: AMLODIPINE BESYLATE
  6. AMOXICILLIN [Concomitant]
     Active Substance: AMOXICILLIN
  7. DOCUSATE CALCIUM [Concomitant]
     Active Substance: DOCUSATE CALCIUM
  8. DULOXETINE HYDROCHLORIDE [Concomitant]
     Active Substance: DULOXETINE HYDROCHLORIDE
  9. ESCITALOPRAM OXALATE [Concomitant]
     Active Substance: ESCITALOPRAM OXALATE
  10. FINASTERIDE [Concomitant]
     Active Substance: FINASTERIDE
  11. FLUTICASONE PROPIONATE [Concomitant]
     Active Substance: FLUTICASONE PROPIONATE
  12. FUROSEMIDE [Concomitant]
     Active Substance: FUROSEMIDE
  13. GABAPENTIN [Concomitant]
     Active Substance: GABAPENTIN
  14. HUMULIN R [Concomitant]
     Active Substance: INSULIN HUMAN
  15. PEPPERMINT OIL [Concomitant]
     Active Substance: PEPPERMINT OIL
  16. KETOCONAZOLE [Concomitant]
     Active Substance: KETOCONAZOLE
  17. LORAZEPAM [Concomitant]
     Active Substance: LORAZEPAM
  18. LOVENOX [Concomitant]
     Active Substance: ENOXAPARIN SODIUM
  19. MYRBETRIQ [Concomitant]
     Active Substance: MIRABEGRON
  20. OXYBUTYNIN CHLORIDE [Concomitant]
     Active Substance: OXYBUTYNIN CHLORIDE
  21. OXYCODONE HYDROCHLORIDE [Concomitant]
     Active Substance: OXYCODONE HYDROCHLORIDE
  22. PANTOPRAZOLE SODIUM [Concomitant]
     Active Substance: PANTOPRAZOLE SODIUM
  23. PERCOCET [Concomitant]
     Active Substance: ACETAMINOPHEN\OXYCODONE HYDROCHLORIDE
  24. ROSUVASTATIN CALCIUM [Concomitant]
     Active Substance: ROSUVASTATIN CALCIUM
  25. TAMSULOSIN HYDROCHLORIDE [Concomitant]
     Active Substance: TAMSULOSIN HYDROCHLORIDE
  26. TRULANCE [Concomitant]
     Active Substance: PLECANATIDE
  27. TYLENOL EXTRA STRENGTH [Concomitant]
     Active Substance: ACETAMINOPHEN
  28. VENCLEXTA [Concomitant]
     Active Substance: VENETOCLAX
  29. WARFARIN SODIUM [Concomitant]
     Active Substance: WARFARIN SODIUM
  30. ZOFRAN [Concomitant]
     Active Substance: ONDANSETRON HYDROCHLORIDE
  31. ZOLPIDEM TARTRATE [Concomitant]
     Active Substance: ZOLPIDEM TARTRATE
  32. FLONASE ALLERGY RELIEF [Concomitant]
     Active Substance: FLUTICASONE PROPIONATE
  33. LYRICA [Concomitant]
     Active Substance: PREGABALIN
  34. PREDNISONE [Concomitant]
     Active Substance: PREDNISONE
  35. MINERALS [Concomitant]
     Active Substance: MINERALS
  36. SPIRONOLACTONE [Concomitant]
     Active Substance: SPIRONOLACTONE
  37. DOCUSATE SODIUM [Concomitant]
     Active Substance: DOCUSATE SODIUM

REACTIONS (6)
  - Prostatic disorder [Unknown]
  - Bladder operation [Unknown]
  - Urinary tract infection [Unknown]
  - Diarrhoea [Unknown]
  - Arthralgia [Unknown]
  - Therapy interrupted [Recovered/Resolved]
